FAERS Safety Report 5145474-6 (Version None)
Quarter: 2006Q4

REPORT INFORMATION
  Report Type: 
  Country: None (occurrence: None)
  Receive Date: 20061101
  Receipt Date: 20061010
  Transmission Date: 20070319
  Serious: No
  Sender: FDA-Public Use
  Company Number: US200608006256

PATIENT
  Age: 14 Year
  Sex: Male

DRUGS (8)
  1. ZYPREXA [Suspect]
     Indication: AUTISM SPECTRUM DISORDER
     Dosage: 25 MG; SEE IMAGE
     Dates: start: 20060601, end: 20060822
  2. ZYPREXA [Suspect]
     Indication: AUTISM SPECTRUM DISORDER
     Dosage: 25 MG; SEE IMAGE
     Dates: start: 20060822, end: 20060829
  3. ZYPREXA ZYDIS [Suspect]
     Indication: ABNORMAL BEHAVIOUR
     Dosage: 20 MG, SUBLINGUAL; SEE IMAGE
     Route: 060
     Dates: start: 20060623
  4. ZYPREXA ZYDIS [Suspect]
     Indication: ABNORMAL BEHAVIOUR
     Dosage: 20 MG, SUBLINGUAL; SEE IMAGE
     Route: 060
     Dates: start: 20060829
  5. ZYPREXA ZYDIS [Suspect]
     Indication: ABNORMAL BEHAVIOUR
     Dosage: 20 MG, SUBLINGUAL; SEE IMAGE
     Route: 060
     Dates: start: 20060829
  6. ZYPREXA ZYDIS [Suspect]
     Indication: ABNORMAL BEHAVIOUR
     Dosage: 20 MG, SUBLINGUAL; SEE IMAGE
     Route: 060
     Dates: start: 20060829
  7. NIACIN [Concomitant]
  8. RISPERIDONE [Concomitant]

REACTIONS (16)
  - ACNE [None]
  - ACTIVITIES OF DAILY LIVING IMPAIRED [None]
  - ANTISOCIAL BEHAVIOUR [None]
  - APATHY [None]
  - CONDITION AGGRAVATED [None]
  - EPISTAXIS [None]
  - FATIGUE [None]
  - HYPERSOMNIA [None]
  - MANIA [None]
  - MOOD ALTERED [None]
  - PRESCRIBED OVERDOSE [None]
  - PRURITUS [None]
  - RASH ERYTHEMATOUS [None]
  - SKIN DISCOLOURATION [None]
  - SKIN LACERATION [None]
  - SOMNOLENCE [None]
